FAERS Safety Report 8723040 (Version 3)
Quarter: 2012Q4

REPORT INFORMATION
  Report Type: 
  Country: HU (occurrence: HU)
  Receive Date: 20120814
  Receipt Date: 20121003
  Transmission Date: 20130627
  Serious: Yes (Death, Hospitalization)
  Sender: FDA-Public Use
  Company Number: PHHY2012HU069425

PATIENT
  Age: 29 Year
  Sex: Female

DRUGS (14)
  1. DOXORUBICIN [Suspect]
     Indication: HODGKIN^S DISEASE
  2. BLEOMYCIN SULFATE [Suspect]
     Indication: HODGKIN^S DISEASE
  3. VINBLASTINE [Suspect]
     Indication: HODGKIN^S DISEASE
  4. DACARBAZINE [Suspect]
     Indication: HODGKIN^S DISEASE
  5. DEXAMETHASONE [Suspect]
     Indication: HODGKIN^S DISEASE
  6. CYTARABINE [Suspect]
     Indication: HODGKIN^S DISEASE
  7. CISPLATIN [Suspect]
     Indication: HODGKIN^S DISEASE
  8. IFOSFAMIDE [Suspect]
     Indication: HODGKIN^S DISEASE
  9. CARBOPLATIN [Suspect]
     Indication: HODGKIN^S DISEASE
  10. ETOPOSIDE [Suspect]
     Indication: HODGKIN^S DISEASE
  11. GEMCITABINE [Suspect]
     Indication: HODGKIN^S DISEASE
  12. VINORELBINE [Suspect]
     Indication: HODGKIN^S DISEASE
  13. RITUXIMAB [Suspect]
     Indication: HODGKIN^S DISEASE
  14. RADIOTHERAPY [Concomitant]
     Indication: HODGKIN^S DISEASE

REACTIONS (7)
  - Cytomegalovirus infection [Fatal]
  - Pyrexia [Fatal]
  - Oophoritis [Fatal]
  - Pneumonia cytomegaloviral [Fatal]
  - Respiratory failure [Fatal]
  - Histiocytosis haematophagic [Unknown]
  - Pancytopenia [Unknown]
